FAERS Safety Report 7749489-0 (Version None)
Quarter: 2011Q3

REPORT INFORMATION
  Report Type: 
  Country: None (occurrence: None)
  Receive Date: 20110907
  Receipt Date: 20110825
  Transmission Date: 20111222
  Serious: Yes (Hospitalization)
  Sender: FDA-Public Use
  Company Number: 2011152459

PATIENT
  Age: 67 Year
  Sex: Female

DRUGS (10)
  1. CARBOPLATIN [Suspect]
     Dosage: INTRAVENOUS
     Route: 042
  2. ASPIRIN [Concomitant]
  3. RAMIPRIL [Concomitant]
  4. DALTEPARIN SODIUM [Suspect]
     Indication: LUNG NEOPLASM MALIGNANT
     Dates: start: 20110616
  5. ETOPOSIDE [Suspect]
     Dosage: INTRAVENOUS
     Route: 042
  6. ORAMORPH SR [Concomitant]
  7. LACTULOSE [Concomitant]
  8. SENNA (SENNA) [Concomitant]
  9. GLICLAZIDE (GLICLAZIDE) [Concomitant]
  10. METOCLOPRAMIDE [Concomitant]

REACTIONS (3)
  - MOBILITY DECREASED [None]
  - MUSCULAR WEAKNESS [None]
  - FATIGUE [None]
